FAERS Safety Report 18242744 (Version 1)
Quarter: 2020Q3

REPORT INFORMATION
  Report Type: Spontaneous
  Country: US (occurrence: US)
  Receive Date: 20200908
  Receipt Date: 20200908
  Transmission Date: 20201103
  Serious: No
  Sender: FDA-Public Use
  Company Number: US-MORTON GROVE PHARMACEUTICALS, INC.-2089488

PATIENT
  Sex: Male

DRUGS (1)
  1. LINDANE SHAMPOO [Suspect]
     Active Substance: LINDANE
     Indication: LICE INFESTATION
     Route: 061

REACTIONS (9)
  - Product administration error [Unknown]
  - Rash [Unknown]
  - Skin burning sensation [Unknown]
  - Dizziness [Unknown]
  - Pruritus [Unknown]
  - Somnolence [Unknown]
  - Malaise [Unknown]
  - Alopecia [Unknown]
  - Nervousness [Unknown]
